FAERS Safety Report 22373405 (Version 1)
Quarter: 2023Q2

REPORT INFORMATION
  Report Type: Spontaneous
  Country: JP (occurrence: KH)
  Receive Date: 20230526
  Receipt Date: 20230526
  Transmission Date: 20230722
  Serious: Yes (Other)
  Sender: FDA-Public Use
  Company Number: JP-KI BIOPHARMA, LLC-2023KAM00011

PATIENT
  Sex: Female

DRUGS (3)
  1. HEPATITIS B IMMUNE GLOBULIN [Suspect]
     Active Substance: HUMAN HEPATITIS B VIRUS IMMUNE GLOBULIN
     Indication: Antiviral prophylaxis
  2. HEPATITIS B VIRUS VACCINE [Suspect]
     Active Substance: HEPATITIS B VIRUS VACCINE
     Indication: Antiviral prophylaxis
  3. DIPHTHERIA AND TETANUS TOXOIDS AND PERTUSSIS VACCINE AND HAEMOPHILUS B [Concomitant]
     Active Substance: DIPHTHERIA AND TETANUS TOXOIDS AND PERTUSSIS VACCINE AND HAEMOPHILUS B AND HEPATITIS B VIRUS VACCINE
     Indication: Antiviral prophylaxis
     Dosage: 3 DOSE PENTAVALENT VACCINE

REACTIONS (1)
  - Drug ineffective [Unknown]
